FAERS Safety Report 8425329-1 (Version None)
Quarter: 2012Q2

REPORT INFORMATION
  Report Type: 
  Country: None (occurrence: None)
  Receive Date: 20120605
  Receipt Date: 20120605
  Transmission Date: 20120825
  Serious: Yes (Other)
  Sender: FDA-Public Use
  Company Number: None

PATIENT
  Sex: Male
  Weight: 99.3377 kg

DRUGS (1)
  1. DONEPEZIL HCL [Suspect]
     Indication: DEMENTIA ALZHEIMER'S TYPE
     Dosage: 5MG DAILY PO
     Route: 048
     Dates: start: 20120227, end: 20120314

REACTIONS (3)
  - CONFUSIONAL STATE [None]
  - SLEEP TERROR [None]
  - FLUSHING [None]
